FAERS Safety Report 14474325 (Version 1)
Quarter: 2018Q1

REPORT INFORMATION
  Report Type: Spontaneous
  Country: US (occurrence: US)
  Receive Date: 20180131
  Receipt Date: 20180131
  Transmission Date: 20180509
  Serious: Yes (Hospitalization)
  Sender: FDA-Public Use
  Company Number: None

PATIENT
  Age: 65 Year
  Sex: Male
  Weight: 88.9 kg

DRUGS (19)
  1. PROCHLORPERAZINE. [Concomitant]
     Active Substance: PROCHLORPERAZINE
  2. CYCLOPHOSPHAMIDE. [Suspect]
     Active Substance: CYCLOPHOSPHAMIDE
     Dates: end: 20180122
  3. METHOTREXATE. [Suspect]
     Active Substance: METHOTREXATE
     Dates: end: 20180122
  4. VINCRISTINE SULFATE. [Suspect]
     Active Substance: VINCRISTINE SULFATE
     Dates: end: 20180112
  5. DOCUSATE [Concomitant]
     Active Substance: DOCUSATE
  6. SENNA [Concomitant]
     Active Substance: SENNA LEAF\SENNOSIDES\SENNOSIDES A AND B
  7. DEXAMETHASONE. [Suspect]
     Active Substance: DEXAMETHASONE
     Dates: end: 20180111
  8. OXYCODONE [Concomitant]
     Active Substance: OXYCODONE
  9. PANTOPRAZOLE [Concomitant]
     Active Substance: PANTOPRAZOLE
  10. SACUBITRIL [Concomitant]
     Active Substance: SACUBITRIL
  11. CYTARABINE. [Suspect]
     Active Substance: CYTARABINE
     Dates: end: 20180123
  12. FLUCONAZOLE. [Concomitant]
     Active Substance: FLUCONAZOLE
  13. METOPROLOL. [Concomitant]
     Active Substance: METOPROLOL
  14. SOTALOL. [Concomitant]
     Active Substance: SOTALOL
  15. MERCAPTOPURINE. [Suspect]
     Active Substance: MERCAPTOPURINE
     Dates: end: 20180123
  16. DAUNORUBICIN [Suspect]
     Active Substance: DAUNORUBICIN
     Dates: end: 20180112
  17. ACYCLOVIR. [Concomitant]
     Active Substance: ACYCLOVIR
  18. DABIGATRAN [Concomitant]
     Active Substance: DABIGATRAN
  19. POLYETHYLENE GLYCOL PACK [Concomitant]

REACTIONS (3)
  - Cellulitis [None]
  - Febrile neutropenia [None]
  - Infection [None]

NARRATIVE: CASE EVENT DATE: 20180125
